FAERS Safety Report 23406977 (Version 1)
Quarter: 2024Q1

REPORT INFORMATION
  Report Type: Spontaneous
  Country: IE (occurrence: IE)
  Receive Date: 20240116
  Receipt Date: 20240116
  Transmission Date: 20240410
  Serious: Yes (Life-Threatening, Hospitalization)
  Sender: FDA-Public Use
  Company Number: IE-GE HEALTHCARE-2023CSU010251

PATIENT
  Age: 74 Year
  Sex: Female

DRUGS (3)
  1. OMNIPAQUE [Suspect]
     Active Substance: IOHEXOL
     Indication: Computerised tomogram abdomen
     Dosage: 85 ML, TOTAL
     Route: 042
     Dates: start: 20231108, end: 20231108
  2. OMNIPAQUE [Suspect]
     Active Substance: IOHEXOL
     Indication: Diarrhoea
  3. OMNIPAQUE [Suspect]
     Active Substance: IOHEXOL
     Indication: Oedema peripheral

REACTIONS (5)
  - Anaphylactic reaction [Recovered/Resolved]
  - Cardiac arrest [Recovered/Resolved]
  - Malaise [Recovered/Resolved]
  - Swelling [Recovered/Resolved]
  - Pruritus [Recovered/Resolved]

NARRATIVE: CASE EVENT DATE: 20231108
